FAERS Safety Report 6926636-1 (Version None)
Quarter: 2010Q3

REPORT INFORMATION
  Report Type: 
  Country: None (occurrence: None)
  Receive Date: 20100816
  Receipt Date: 20100811
  Transmission Date: 20110219
  Serious: Yes (Other)
  Sender: FDA-Public Use
  Company Number: US-AMGEN-QUU430407

PATIENT
  Age: 27 Year
  Sex: Female

DRUGS (2)
  1. NPLATE [Suspect]
     Indication: IDIOPATHIC THROMBOCYTOPENIC PURPURA
     Dates: start: 20100628
  2. PREDNISONE [Concomitant]
     Dates: start: 20100805, end: 20100810

REACTIONS (1)
  - PLATELET COUNT DECREASED [None]
